FAERS Safety Report 4653149-2 (Version None)
Quarter: 2005Q2

REPORT INFORMATION
  Report Type: 
  Country: None (occurrence: None)
  Receive Date: 20050502
  Receipt Date: 20050502
  Transmission Date: 20051028
  Serious: Yes (Disabling)
  Sender: FDA-Public Use
  Company Number: None

PATIENT
  Age: 76 Year
  Sex: Female
  Weight: 58.9676 kg

DRUGS (4)
  1. CIPRO [Suspect]
     Indication: HUMAN EHRLICHIOSIS
     Dosage: ONCE A DAY      ORAL
     Route: 048
     Dates: start: 20040415, end: 20040515
  2. CIPRO [Suspect]
     Indication: LYME DISEASE
     Dosage: ONCE A DAY      ORAL
     Route: 048
     Dates: start: 20040415, end: 20040515
  3. FLEXERIL [Suspect]
     Indication: HUMAN EHRLICHIOSIS
     Dosage: ONCE A DAY    ORAL
     Route: 048
     Dates: start: 20040415, end: 20040515
  4. FLEXERIL [Suspect]
     Indication: LYME DISEASE
     Dosage: ONCE A DAY    ORAL
     Route: 048
     Dates: start: 20040415, end: 20040515

REACTIONS (2)
  - MUSCULAR WEAKNESS [None]
  - WHEELCHAIR USER [None]
